FAERS Safety Report 10458148 (Version 2)
Quarter: 2014Q3

REPORT INFORMATION
  Report Type: Report from Study
  Country: US (occurrence: US)
  Receive Date: 20140917
  Receipt Date: 20140917
  Transmission Date: 20150326
  Serious: Yes (Hospitalization)
  Sender: FDA-Public Use
  Company Number: US-ROCHE-1442622

PATIENT
  Age: 60 Year
  Sex: Male

DRUGS (11)
  1. SOVALDI [Suspect]
     Active Substance: SOFOSBUVIR
     Indication: CHRONIC HEPATITIS C
     Route: 048
     Dates: start: 20140723
  2. PHENERGAN [Concomitant]
     Active Substance: PROMETHAZINE HYDROCHLORIDE
     Indication: NAUSEA
     Route: 048
  3. ZOFRAN [Concomitant]
     Active Substance: ONDANSETRON HYDROCHLORIDE
     Indication: NAUSEA
     Route: 048
  4. PEGASYS [Suspect]
     Active Substance: PEGINTERFERON ALFA-2A
     Indication: CHRONIC HEPATITIS C
     Route: 058
     Dates: start: 20140723
  5. MARINOL (UNITED STATES) [Concomitant]
     Indication: NAUSEA
     Route: 048
  6. RIBASPHERE [Suspect]
     Active Substance: RIBAVIRIN
     Indication: CHRONIC HEPATITIS C
     Dosage: DIVIDED DOSES
     Route: 048
     Dates: start: 20140723
  7. PRILOSEC [Concomitant]
     Active Substance: OMEPRAZOLE MAGNESIUM
     Indication: NAUSEA
     Route: 048
  8. OXYCODONE [Concomitant]
     Active Substance: OXYCODONE
     Dosage: AS NEEDED.
     Route: 048
  9. ALPRAZOLAM. [Concomitant]
     Active Substance: ALPRAZOLAM
     Dosage: AS NEEDED
     Route: 048
  10. MARINOL (UNITED STATES) [Concomitant]
     Indication: INCREASED APPETITE
  11. PROMETHAZINE [Concomitant]
     Active Substance: PROMETHAZINE\PROMETHAZINE HYDROCHLORIDE
     Route: 048

REACTIONS (27)
  - Confusional state [Recovering/Resolving]
  - Appetite disorder [Unknown]
  - Headache [Unknown]
  - Irritability [Unknown]
  - Aphagia [Unknown]
  - Pruritus generalised [Unknown]
  - Rash [Recovering/Resolving]
  - Arthralgia [Unknown]
  - Dry skin [Unknown]
  - Photophobia [Unknown]
  - Injection site pruritus [Unknown]
  - Thermohyperaesthesia [Unknown]
  - Skin burning sensation [Unknown]
  - Asthenia [Unknown]
  - Fatigue [Unknown]
  - Dysuria [Unknown]
  - Pain in extremity [Unknown]
  - Ammonia increased [Recovering/Resolving]
  - Throat irritation [Unknown]
  - Nausea [Unknown]
  - Hepatic pain [Unknown]
  - Musculoskeletal stiffness [Unknown]
  - Influenza like illness [Unknown]
  - Pain [Unknown]
  - Myalgia [Unknown]
  - Emotional disorder [Unknown]
  - Bone pain [Unknown]

NARRATIVE: CASE EVENT DATE: 20140813
